FAERS Safety Report 15984664 (Version 1)
Quarter: 2019Q1

REPORT INFORMATION
  Report Type: Spontaneous
  Country: US (occurrence: US)
  Receive Date: 20190219
  Receipt Date: 20190219
  Transmission Date: 20190418
  Serious: Yes (Death, Other)
  Sender: FDA-Public Use
  Company Number: None

PATIENT
  Age: 66 Year
  Sex: Male
  Weight: 72.45 kg

DRUGS (13)
  1. FUROSEMIDE. [Concomitant]
     Active Substance: FUROSEMIDE
  2. CARVEDILOL. [Concomitant]
     Active Substance: CARVEDILOL
  3. POTASSIUM CHLORIDE CRYS ER [Concomitant]
     Active Substance: POTASSIUM CHLORIDE
  4. DOCETAXEL. [Suspect]
     Active Substance: DOCETAXEL
     Indication: BENIGN LYMPH NODE NEOPLASM
     Dosage: ?          OTHER FREQUENCY:DAY 1 EVERY 21 DAY;?
     Route: 042
     Dates: start: 20180507
  5. NORCO [Concomitant]
     Active Substance: ACETAMINOPHEN\HYDROCODONE BITARTRATE
  6. CISPLASTIN [Suspect]
     Active Substance: CISPLATIN
     Indication: GASTRIC CANCER
     Dosage: ?          OTHER FREQUENCY:DAY 1 EVERY 21 DAY;?
     Route: 042
     Dates: start: 20180507
  7. CISPLASTIN [Suspect]
     Active Substance: CISPLATIN
     Indication: BENIGN LYMPH NODE NEOPLASM
     Dosage: ?          OTHER FREQUENCY:DAY 1 EVERY 21 DAY;?
     Route: 042
     Dates: start: 20180507
  8. VALSARTAN. [Concomitant]
     Active Substance: VALSARTAN
  9. DOCETAXEL. [Suspect]
     Active Substance: DOCETAXEL
     Indication: GASTRIC CANCER
     Dosage: ?          OTHER FREQUENCY:DAY 1 EVERY 21 DAY;?
     Route: 042
     Dates: start: 20180507
  10. CIPRO [Concomitant]
     Active Substance: CIPROFLOXACIN HYDROCHLORIDE
  11. COLCHICINE. [Concomitant]
     Active Substance: COLCHICINE
  12. MAGNESIUM OXIDE. [Concomitant]
     Active Substance: MAGNESIUM OXIDE
  13. PROTONIX [Concomitant]
     Active Substance: PANTOPRAZOLE SODIUM

REACTIONS (1)
  - Death [None]
